FAERS Safety Report 6676483-3 (Version None)
Quarter: 2010Q2

REPORT INFORMATION
  Report Type: 
  Country: None (occurrence: None)
  Receive Date: 20100412
  Receipt Date: 20100406
  Transmission Date: 20101027
  Serious: Yes (Death)
  Sender: FDA-Public Use
  Company Number: PHHY2010US22234

PATIENT
  Sex: Male
  Weight: 164 kg

DRUGS (1)
  1. EXJADE [Suspect]
     Indication: PROSTATE CANCER
     Dosage: 1500 MG, QD
     Route: 048
     Dates: start: 20090817

REACTIONS (1)
  - DEATH [None]
